FAERS Safety Report 22046528 (Version 2)
Quarter: 2023Q1

REPORT INFORMATION
  Report Type: Spontaneous
  Country: AR (occurrence: AR)
  Receive Date: 20230228
  Receipt Date: 20230302
  Transmission Date: 20230417
  Serious: Yes (Other)
  Sender: FDA-Public Use
  Company Number: AR-NOVOPROD-1018218

PATIENT
  Age: 12 Year
  Sex: Male
  Weight: 36.5 kg

DRUGS (2)
  1. NORDITROPIN [Suspect]
     Active Substance: SOMATROPIN
     Indication: Product used for unknown indication
     Dosage: 0.85 MG, QD
     Route: 058
     Dates: start: 202006
  2. NORDITROPIN [Suspect]
     Active Substance: SOMATROPIN
     Dosage: 0.16MG/KG/WEEK
     Route: 058

REACTIONS (1)
  - Gastric polyps [Not Recovered/Not Resolved]

NARRATIVE: CASE EVENT DATE: 20230122
